FAERS Safety Report 5912570-2 (Version None)
Quarter: 2008Q4

REPORT INFORMATION
  Report Type: 
  Country: None (occurrence: None)
  Receive Date: 20081008
  Receipt Date: 20080930
  Transmission Date: 20090506
  Serious: Yes (Other)
  Sender: FDA-Public Use
  Company Number: US-SANOFI-SYNTHELABO-A03200803160

PATIENT
  Sex: Female
  Weight: 89.8 kg

DRUGS (3)
  1. PLAVIX [Suspect]
     Indication: ATRIAL SEPTAL DEFECT
     Dosage: UNK
     Route: 048
     Dates: start: 20080611, end: 20080728
  2. PLAVIX [Suspect]
     Route: 048
     Dates: start: 20080101, end: 20080806
  3. PRENATAL CARE [Concomitant]
     Indication: DRUG USE FOR UNKNOWN INDICATION
     Dosage: UNK
     Route: 048

REACTIONS (2)
  - ABORTION SPONTANEOUS [None]
  - DRUG EXPOSURE DURING PREGNANCY [None]
